FAERS Safety Report 6443921-0 (Version None)
Quarter: 2009Q4

REPORT INFORMATION
  Report Type: 
  Country: None (occurrence: None)
  Receive Date: 20091117
  Receipt Date: 20091112
  Transmission Date: 20100525
  Serious: Yes (Death, Hospitalization)
  Sender: FDA-Public Use
  Company Number: US-GILEAD-2009-0025336

PATIENT
  Sex: Male

DRUGS (14)
  1. LETAIRIS [Suspect]
     Indication: PULMONARY ARTERIAL HYPERTENSION
     Route: 048
     Dates: start: 20090501, end: 20090901
  2. FLOLAN [Concomitant]
  3. REVATIO [Concomitant]
  4. FUROSEMIDE [Concomitant]
  5. SPIRONOLACTONE [Concomitant]
  6. PROPRANOLOL [Concomitant]
  7. VITAMIN A [Concomitant]
  8. CALCIUM [Concomitant]
  9. THIAMINE [Concomitant]
  10. FOLIC ACID [Concomitant]
  11. TRAZODONE HCL [Concomitant]
  12. NEXIUM [Concomitant]
  13. FINASTERIDE [Concomitant]
  14. LACTULOSE [Concomitant]

REACTIONS (4)
  - COAGULOPATHY [None]
  - HEPATITIS B [None]
  - PORTOPULMONARY HYPERTENSION [None]
  - VARICES OESOPHAGEAL [None]
